FAERS Safety Report 12914574 (Version 1)
Quarter: 2016Q4

REPORT INFORMATION
  Report Type: Spontaneous
  Country: US (occurrence: US)
  Receive Date: 20161106
  Receipt Date: 20161106
  Transmission Date: 20170207
  Serious: No
  Sender: FDA-Public Use
  Company Number: US-RELYPSA-RLY2016001851

PATIENT
  Age: 63 Year
  Sex: Male

DRUGS (11)
  1. AMITRIPTYLINE HCL [Concomitant]
     Active Substance: AMITRIPTYLINE
  2. IBUPROFEN. [Concomitant]
     Active Substance: IBUPROFEN
     Dosage: 8.4 G, QD
     Route: 048
  3. TRADJENTA [Concomitant]
     Active Substance: LINAGLIPTIN
  4. AMOXICILLIN. [Concomitant]
     Active Substance: AMOXICILLIN
  5. SIMVASTATIN. [Concomitant]
     Active Substance: SIMVASTATIN
  6. VELTASSA [Suspect]
     Active Substance: PATIROMER
     Indication: HYPERKALAEMIA
     Dosage: 8.4 G, UNK
     Route: 048
  7. FLUOXETINE HCL [Concomitant]
     Active Substance: FLUOXETINE HYDROCHLORIDE
  8. VITAMIN D                          /00107901/ [Concomitant]
     Active Substance: ERGOCALCIFEROL
  9. BENICAR [Concomitant]
     Active Substance: OLMESARTAN MEDOXOMIL
  10. LOSARTAN. [Concomitant]
     Active Substance: LOSARTAN
  11. POTASSIUM [Concomitant]
     Active Substance: POTASSIUM

REACTIONS (3)
  - Tooth extraction [Unknown]
  - Headache [Unknown]
  - Toothache [Unknown]

NARRATIVE: CASE EVENT DATE: 20160806
